FAERS Safety Report 23072434 (Version 2)
Quarter: 2023Q4

REPORT INFORMATION
  Report Type: Report from Study
  Country: JP (occurrence: JP)
  Receive Date: 20231017
  Receipt Date: 20231030
  Transmission Date: 20240109
  Serious: Yes (Hospitalization)
  Sender: FDA-Public Use
  Company Number: JP-GLAXOSMITHKLINE-JP2023JPN140238

PATIENT

DRUGS (2)
  1. LAMOTRIGINE [Suspect]
     Active Substance: LAMOTRIGINE
     Dosage: UNK
     Route: 064
  2. LEVETIRACETAM [Suspect]
     Active Substance: LEVETIRACETAM
     Dosage: UNK
     Route: 064

REACTIONS (3)
  - Drug withdrawal syndrome neonatal [Unknown]
  - Transient tachypnoea of the newborn [Unknown]
  - Foetal exposure during pregnancy [Unknown]
